FAERS Safety Report 8386566-8 (Version None)
Quarter: 2012Q2

REPORT INFORMATION
  Report Type: 
  Country: None (occurrence: None)
  Receive Date: 20120525
  Receipt Date: 20110818
  Transmission Date: 20120825
  Serious: No
  Sender: FDA-Public Use
  Company Number: US-GLAXOSMITHKLINE-A0941554A

PATIENT
  Age: 40 Year
  Sex: Female

DRUGS (3)
  1. NEILMED SINUS RINSE [Suspect]
     Indication: VASOMOTOR RHINITIS
     Dates: start: 20110801
  2. SYNTHROID [Concomitant]
  3. VERAMYST [Suspect]
     Indication: VASOMOTOR RHINITIS
     Dosage: 4SPR PER DAY
     Route: 045
     Dates: start: 20110801

REACTIONS (1)
  - RHINORRHOEA [None]
